FAERS Safety Report 13493034 (Version 1)
Quarter: 2017Q2

REPORT INFORMATION
  Report Type: Report from Study
  Country: US (occurrence: US)
  Receive Date: 20170427
  Receipt Date: 20170427
  Transmission Date: 20170830
  Serious: Yes (Hospitalization, Other)
  Sender: FDA-Public Use
  Company Number: US-GILEAD-2017-0269422

PATIENT
  Age: 72 Year
  Sex: Male

DRUGS (1)
  1. SOFOSBUVIR [Suspect]
     Active Substance: SOFOSBUVIR
     Indication: CHRONIC HEPATITIS C
     Dosage: 400 MG, UNK
     Route: 048
     Dates: start: 201702, end: 201704

REACTIONS (5)
  - Brain neoplasm [Unknown]
  - Cerebrovascular accident [Unknown]
  - Confusional state [Unknown]
  - Balance disorder [Unknown]
  - Amnesia [Unknown]

NARRATIVE: CASE EVENT DATE: 201702
